FAERS Safety Report 7427059-1 (Version None)
Quarter: 2011Q2

REPORT INFORMATION
  Report Type: 
  Country: None (occurrence: None)
  Receive Date: 20110420
  Receipt Date: 20110408
  Transmission Date: 20111010
  Serious: Yes (Hospitalization)
  Sender: FDA-Public Use
  Company Number: PHHY2011DE30163

PATIENT
  Sex: Male
  Weight: 85 kg

DRUGS (3)
  1. CONCOR [Concomitant]
     Indication: ARRHYTHMIA
     Dosage: 5 MG, UNK
  2. DIGIMERCK [Concomitant]
     Indication: ARRHYTHMIA
     Dosage: 0.07 MG, UNK
  3. AFINITOR [Suspect]
     Indication: RENAL CELL CARCINOMA
     Dosage: 10 MG, QD
     Route: 048
     Dates: start: 20110206, end: 20110306

REACTIONS (2)
  - NODAL ARRHYTHMIA [None]
  - ARRHYTHMIA SUPRAVENTRICULAR [None]
